FAERS Safety Report 8364469-2 (Version None)
Quarter: 2012Q2

REPORT INFORMATION
  Report Type: 
  Country: None (occurrence: None)
  Receive Date: 20120516
  Receipt Date: 20120508
  Transmission Date: 20120825
  Serious: Yes (Hospitalization)
  Sender: FDA-Public Use
  Company Number: PK-JNJFOC-20120509889

PATIENT

DRUGS (16)
  1. HALOPERIDOL [Suspect]
     Indication: MENTAL DISORDER
     Route: 065
  2. CHLORPROMAZINE [Interacting]
     Indication: MENTAL DISORDER
     Route: 065
  3. LITHIUM CARBONATE [Interacting]
     Indication: MENTAL DISORDER
     Route: 065
  4. VENLAFAXINE [Interacting]
     Indication: MENTAL DISORDER
     Route: 065
  5. PROCYCLIDINE HYDROCHLORIDE 2MG TAB [Interacting]
     Indication: MENTAL DISORDER
     Route: 065
  6. DIVALPROEX SODIUM [Interacting]
     Indication: MENTAL DISORDER
     Route: 065
  7. OLANZAPINE [Interacting]
     Indication: MENTAL DISORDER
     Route: 065
  8. RISPERIDONE [Suspect]
     Indication: MENTAL DISORDER
     Route: 065
  9. FLUPHENAZINE [Interacting]
     Indication: MENTAL DISORDER
     Route: 065
  10. AMITRIPTYLINE HCL [Interacting]
     Indication: MENTAL DISORDER
     Route: 065
  11. FLUOXETINE [Interacting]
     Indication: MENTAL DISORDER
     Route: 065
  12. TRAMADOL HCL [Suspect]
     Indication: MENTAL DISORDER
     Route: 065
  13. TRIHEXYPHENIDYL HCL [Interacting]
     Indication: MENTAL DISORDER
     Route: 065
  14. PROMETHAZINE [Interacting]
     Indication: MENTAL DISORDER
     Route: 065
  15. PROPRANOLOL [Interacting]
     Indication: MENTAL DISORDER
     Route: 065
  16. IMIPRAMINE [Interacting]
     Indication: MENTAL DISORDER
     Route: 065

REACTIONS (1)
  - DRUG INTERACTION [None]
